FAERS Safety Report 6025063-1 (Version None)
Quarter: 2008Q4

REPORT INFORMATION
  Report Type: 
  Country: None (occurrence: None)
  Receive Date: 20081222
  Receipt Date: 20081031
  Transmission Date: 20090506
  Serious: No
  Sender: FDA-Public Use
  Company Number: ALL1-2008-03205

PATIENT

DRUGS (1)
  1. VYVANSE [Suspect]
     Dosage: 30 MG, 1X/DAY:QD, ORAL
     Route: 048

REACTIONS (4)
  - ANXIETY [None]
  - PALPITATIONS [None]
  - TACHYCARDIA [None]
  - TIC [None]
